FAERS Safety Report 17824937 (Version 1)
Quarter: 2020Q2

REPORT INFORMATION
  Report Type: Spontaneous
  Country: US (occurrence: US)
  Receive Date: 20200526
  Receipt Date: 20200526
  Transmission Date: 20200714
  Serious: No
  Sender: FDA-Public Use
  Company Number: US-SA-2020SA134529

PATIENT
  Sex: Female

DRUGS (1)
  1. TUBERSOL [Suspect]
     Active Substance: TUBERCULIN PURIFIED PROTEIN DERIVATIVE
     Indication: OCCUPATIONAL EXPOSURE TO PRODUCT
     Dosage: UNK

REACTIONS (2)
  - Exposure via eye contact [Unknown]
  - Accidental exposure to product [Unknown]
